FAERS Safety Report 13381792 (Version 1)
Quarter: 2017Q1

REPORT INFORMATION
  Report Type: Spontaneous
  Country: US (occurrence: US)
  Receive Date: 20170329
  Receipt Date: 20170329
  Transmission Date: 20170429
  Serious: No
  Sender: FDA-Public Use
  Company Number: None

PATIENT

DRUGS (3)
  1. LORATADINE. [Suspect]
     Active Substance: LORATADINE
     Dosage: TABLET ORAL 10 MG
     Route: 048
  2. SYMBICORT [Suspect]
     Active Substance: BUDESONIDE\FORMOTEROL FUMARATE DIHYDRATE
     Dosage: AEROSOL ORAL 80MCG INHALER
     Route: 048
  3. ALBUTEROL SULFATE. [Suspect]
     Active Substance: ALBUTEROL SULFATE
     Dosage: SOLUTION NEBULIZER SOLUTION

REACTIONS (2)
  - Intercepted drug dispensing error [None]
  - Intercepted wrong patient selected [None]
